FAERS Safety Report 14704715 (Version 1)
Quarter: 2018Q2

REPORT INFORMATION
  Report Type: Report from Study
  Country: None (occurrence: US)
  Receive Date: 20180402
  Receipt Date: 20180402
  Transmission Date: 20180711
  Serious: Yes (Hospitalization)
  Sender: FDA-Public Use
  Company Number: US-ABBVIE-17K-163-2207656-00

PATIENT
  Age: 67 Year
  Sex: Female

DRUGS (1)
  1. HUMIRA [Suspect]
     Active Substance: ADALIMUMAB
     Indication: CROHN^S DISEASE
     Route: 058

REACTIONS (11)
  - Wrist fracture [Unknown]
  - Muscular weakness [Unknown]
  - Pelvic fracture [Unknown]
  - Osteoporosis [Unknown]
  - Abdominal pain [Unknown]
  - Hip fracture [Unknown]
  - Rib fracture [Unknown]
  - Drug ineffective [Unknown]
  - Fall [Unknown]
  - Head injury [Unknown]
  - Stress [Unknown]

NARRATIVE: CASE EVENT DATE: 2017
